FAERS Safety Report 21457099 (Version 4)
Quarter: 2025Q4

REPORT INFORMATION
  Report Type: Report from Study
  Country: US (occurrence: US)
  Receive Date: 20221014
  Receipt Date: 20251128
  Transmission Date: 20260118
  Serious: Yes (Other)
  Sender: TAKEDA
  Company Number: US-TAKEDA-2022TUS022862

PATIENT
  Age: 77 Year
  Sex: Female

DRUGS (2)
  1. VEDOLIZUMAB [Suspect]
     Active Substance: VEDOLIZUMAB
     Indication: Colitis ulcerative
     Dosage: 300 MILLIGRAM
  2. VEDOLIZUMAB [Suspect]
     Active Substance: VEDOLIZUMAB
     Dosage: 300 MILLIGRAM, Q4WEEKS

REACTIONS (17)
  - Haematochezia [Unknown]
  - Cerebrovascular accident [Unknown]
  - Memory impairment [Unknown]
  - Illness [Unknown]
  - Limb discomfort [Unknown]
  - Gastrointestinal disorder [Unknown]
  - Retching [Unknown]
  - Product dose omission issue [Unknown]
  - Inappropriate schedule of product administration [Unknown]
  - Diarrhoea [Unknown]
  - Infection [Unknown]
  - Large intestine polyp [Unknown]
  - Visual impairment [Unknown]
  - Blood test abnormal [Unknown]
  - Renal disorder [Unknown]
  - Vomiting [Unknown]
  - Dyspepsia [Unknown]
